FAERS Safety Report 12850704 (Version 1)
Quarter: 2016Q4

REPORT INFORMATION
  Report Type: Spontaneous
  Country: AU (occurrence: AU)
  Receive Date: 20161014
  Receipt Date: 20161014
  Transmission Date: 20170207
  Serious: Yes (Other)
  Sender: FDA-Public Use
  Company Number: AU-SA-2016SA176598

PATIENT
  Sex: Male

DRUGS (1)
  1. LEMTRADA [Suspect]
     Active Substance: ALEMTUZUMAB
     Route: 042
     Dates: start: 20160914

REACTIONS (6)
  - Abdominal pain [Recovering/Resolving]
  - Candida infection [Recovering/Resolving]
  - Glossodynia [Recovering/Resolving]
  - Gastrointestinal pain [Recovering/Resolving]
  - Oral candidiasis [Unknown]
  - Tongue discolouration [Recovering/Resolving]

NARRATIVE: CASE EVENT DATE: 20160919
